FAERS Safety Report 7438261-7 (Version None)
Quarter: 2011Q2

REPORT INFORMATION
  Report Type: 
  Country: None (occurrence: None)
  Receive Date: 20110426
  Receipt Date: 20101026
  Transmission Date: 20111010
  Serious: Yes (Hospitalization, Other)
  Sender: FDA-Public Use
  Company Number: US-BAYER-201023209NA

PATIENT
  Age: 23 Year
  Sex: Female
  Weight: 63 kg

DRUGS (7)
  1. HYDROXYZINE PAMOATE [Concomitant]
     Dosage: UNK
     Dates: start: 20090501
  2. ACYCLOVIR [Concomitant]
     Dosage: UNK
     Dates: start: 20090901
  3. YAZ [Suspect]
     Indication: CONTRACEPTION
     Dosage: UNK UNK, UNK
     Route: 048
     Dates: start: 20060301, end: 20091101
  4. YASMIN [Suspect]
     Indication: CONTRACEPTION
     Dosage: UNK UNK, UNK
     Route: 048
     Dates: start: 20060301, end: 20091101
  5. OCELLA [Suspect]
     Indication: CONTRACEPTION
     Dosage: UNK UNK, UNK
     Route: 048
     Dates: start: 20060301, end: 20091101
  6. METHOCARBAMOL [Concomitant]
     Dosage: UNK
     Dates: start: 20090501
  7. NEEVO TABLETS [Concomitant]
     Dosage: UNK
     Dates: start: 20090901

REACTIONS (5)
  - MYOCARDIAL INFARCTION [None]
  - GALLBLADDER DISORDER [None]
  - CEREBROVASCULAR ACCIDENT [None]
  - PULMONARY EMBOLISM [None]
  - DEEP VEIN THROMBOSIS [None]
